FAERS Safety Report 12934123 (Version 8)
Quarter: 2018Q1

REPORT INFORMATION
  Report Type: Report from Study
  Country: CA (occurrence: CA)
  Receive Date: 20161111
  Receipt Date: 20180201
  Transmission Date: 20180508
  Serious: Yes (Hospitalization, Other)
  Sender: FDA-Public Use
  Company Number: CA-KADMON PHARMACEUTICALS, LLC-KAD201611-004034

PATIENT
  Age: 72 Year
  Sex: Male
  Weight: 81.9 kg

DRUGS (46)
  1. ALENDRONATE [Concomitant]
     Active Substance: ALENDRONATE SODIUM
     Route: 048
  2. TAZOCIN [Concomitant]
     Active Substance: PIPERACILLIN SODIUM\TAZOBACTAM SODIUM
     Route: 048
  3. PREGABALIN. [Concomitant]
     Active Substance: PREGABALIN
     Route: 048
  4. TAZOBACTAM [Concomitant]
     Active Substance: TAZOBACTAM
     Route: 048
  5. CALCIUM CARBONATE. [Concomitant]
     Active Substance: CALCIUM CARBONATE
     Route: 048
  6. TACROLIMUS. [Concomitant]
     Active Substance: TACROLIMUS
     Route: 048
  7. GLUCAGON. [Concomitant]
     Active Substance: GLUCAGON
     Route: 048
  8. BOTOX [Concomitant]
     Active Substance: ONABOTULINUMTOXINA
     Route: 048
  9. PRO CIPROFLOXACIN [Concomitant]
     Route: 048
  10. IRON [Concomitant]
     Active Substance: IRON
     Route: 048
  11. VITAMIN D2 [Concomitant]
     Active Substance: ERGOCALCIFEROL
     Route: 048
  12. ATOVAQUONE. [Concomitant]
     Active Substance: ATOVAQUONE
     Route: 048
  13. NSULIN HUMULIN L [Concomitant]
     Route: 048
  14. METOCLOPRAMIDE. [Concomitant]
     Active Substance: METOCLOPRAMIDE
     Route: 048
  15. PANTOPRAZOLE [Concomitant]
     Active Substance: PANTOPRAZOLE
     Route: 048
  16. MULTIVITAMINS [Concomitant]
     Active Substance: VITAMINS
     Route: 048
  17. PREDNISONE. [Concomitant]
     Active Substance: PREDNISONE
     Route: 048
  18. MAGNESIUM [Concomitant]
     Active Substance: MAGNESIUM
     Route: 048
  19. SODIUM PHOSPHATE [Concomitant]
     Active Substance: SODIUM PHOSPHATE
     Route: 048
  20. TECHNIVIE [Suspect]
     Active Substance: OMBITASVIR HEMINONAHYDRATE\PARITAPREVIR DIHYDRATE\RITONAVIR
     Indication: CHRONIC HEPATITIS C
     Dosage: TABLET
     Route: 048
     Dates: start: 20161026, end: 20170118
  21. TACROLIMUS. [Suspect]
     Active Substance: TACROLIMUS
  22. HYDROMORPHONE [Concomitant]
     Active Substance: HYDROMORPHONE
     Route: 048
  23. AMIKACIN [Concomitant]
     Active Substance: AMIKACIN
     Route: 048
  24. ACETYLSALICYLIC ACID [Concomitant]
     Active Substance: ASPIRIN
     Route: 048
  25. MIDAZOLAM [Concomitant]
     Active Substance: MIDAZOLAM HYDROCHLORIDE
     Route: 048
  26. DALTEPARIN [Concomitant]
     Active Substance: DALTEPARIN
     Route: 048
  27. SODIUM CHLORIDE. [Concomitant]
     Active Substance: SODIUM CHLORIDE
     Route: 048
  28. ZOPICLONE [Concomitant]
     Active Substance: ZOPICLONE
     Route: 048
  29. ACETAMINOPHEN. [Concomitant]
     Active Substance: ACETAMINOPHEN
     Route: 048
  30. HEMCORT H.C. [Concomitant]
     Dosage: OINTMENT
     Route: 061
  31. AMLODIPINE [Concomitant]
     Active Substance: AMLODIPINE BESYLATE
     Indication: HYPERTENSION
     Route: 048
  32. POTASSIUM CHLORIDE. [Concomitant]
     Active Substance: POTASSIUM CHLORIDE
     Route: 048
  33. NOREPINEPHRINE. [Concomitant]
     Active Substance: NOREPINEPHRINE
     Route: 048
  34. LANSOPRAZOLE. [Concomitant]
     Active Substance: LANSOPRAZOLE
     Route: 048
  35. BUSCOPAN (BUTYLSCOPOLAMINE) [Concomitant]
     Route: 048
  36. RIBAVIRIN. [Suspect]
     Active Substance: RIBAVIRIN
     Indication: CHRONIC HEPATITIS C
     Dosage: TABLET
     Route: 048
     Dates: start: 20161026, end: 20161102
  37. RIBAVIRIN. [Suspect]
     Active Substance: RIBAVIRIN
     Dosage: TABLET
     Route: 048
     Dates: start: 20161102, end: 20170118
  38. ALUDROX [Concomitant]
     Route: 048
  39. SODIUM POLYSTYRENE SULFONATE. [Concomitant]
     Active Substance: SODIUM POLYSTYRENE SULFONATE
     Route: 048
  40. MEPARINA [Concomitant]
     Active Substance: ENOXAPARIN SODIUM
     Route: 048
  41. LORAZEPAM. [Concomitant]
     Active Substance: LORAZEPAM
     Route: 048
  42. MAGNESIUM [Concomitant]
     Active Substance: MAGNESIUM
     Route: 048
  43. URSODIOL. [Concomitant]
     Active Substance: URSODIOL
     Route: 048
  44. LATANOPROST. [Concomitant]
     Active Substance: LATANOPROST
     Route: 048
  45. FENTANYL. [Concomitant]
     Active Substance: FENTANYL
     Route: 048
  46. PIPERACILLIN [Concomitant]
     Active Substance: PIPERACILLIN
     Route: 048

REACTIONS (39)
  - Gastroenteritis [Unknown]
  - Acute kidney injury [Recovered/Resolved]
  - Toxicity to various agents [Recovered/Resolved]
  - Vomiting [Recovered/Resolved]
  - Cholangitis [Unknown]
  - Blood albumin decreased [Unknown]
  - Gamma-glutamyltransferase increased [Unknown]
  - Pain [Recovering/Resolving]
  - Asthenia [Unknown]
  - Neutrophil count increased [Unknown]
  - Drug interaction [Unknown]
  - Abdominal pain upper [Unknown]
  - Abdominal pain [Recovered/Resolved]
  - Chills [Unknown]
  - Platelet count decreased [Unknown]
  - Diarrhoea [Unknown]
  - Abdominal pain [Unknown]
  - Nausea [Recovered/Resolved]
  - Monocyte count increased [Recovered/Resolved]
  - Blood alkaline phosphatase increased [Unknown]
  - Dyspnoea [Unknown]
  - Nausea [Recovered/Resolved]
  - Bile duct stenosis [Unknown]
  - Red blood cell count decreased [Unknown]
  - Haemoglobin decreased [Unknown]
  - Haematocrit decreased [Unknown]
  - Lymphocyte count decreased [Unknown]
  - Gait disturbance [Unknown]
  - Transaminases increased [Unknown]
  - White blood cell count decreased [Unknown]
  - Neutrophil count decreased [Unknown]
  - Pancytopenia [Unknown]
  - Biliary tract disorder [Unknown]
  - Epigastric discomfort [Unknown]
  - Alanine aminotransferase increased [Recovered/Resolved]
  - Chest pain [Unknown]
  - Pyrexia [Recovered/Resolved]
  - Abdominal pain upper [Unknown]
  - Blood bilirubin increased [Unknown]

NARRATIVE: CASE EVENT DATE: 20161031
